FAERS Safety Report 18856961 (Version 2)
Quarter: 2021Q1

REPORT INFORMATION
  Report Type: Report from Study
  Country: US (occurrence: US)
  Receive Date: 20210208
  Receipt Date: 20210304
  Transmission Date: 20210420
  Serious: Yes (Death, Other)
  Sender: FDA-Public Use
  Company Number: US-ACADIA PHARMACEUTICALS INC.-ACA-2021-PIM-000459

PATIENT
  Age: 69 Year
  Sex: Male

DRUGS (13)
  1. FLUVOXAMINE [Concomitant]
     Active Substance: FLUVOXAMINE
  2. FINASTERIDE. [Concomitant]
     Active Substance: FINASTERIDE
  3. BUPROPION. [Concomitant]
     Active Substance: BUPROPION
  4. LUBIPROSTONE [Concomitant]
     Active Substance: LUBIPROSTONE
  5. SINEMET [Concomitant]
     Active Substance: CARBIDOPA\LEVODOPA
  6. CLOZAPINE. [Concomitant]
     Active Substance: CLOZAPINE
  7. PANTOPRAZOLE [Concomitant]
     Active Substance: PANTOPRAZOLE
  8. SEROQUEL [Concomitant]
     Active Substance: QUETIAPINE FUMARATE
  9. NUPLAZID [Suspect]
     Active Substance: PIMAVANSERIN TARTRATE
     Indication: PARKINSON^S DISEASE
     Dosage: 34 MILLIGRAM, QD
     Route: 048
     Dates: end: 20210113
  10. ATORVASTATIN [Concomitant]
     Active Substance: ATORVASTATIN
  11. DONEPEZIL. [Concomitant]
     Active Substance: DONEPEZIL
  12. CLONAZEPAM. [Concomitant]
     Active Substance: CLONAZEPAM
  13. METFORMIN [Concomitant]
     Active Substance: METFORMIN HYDROCHLORIDE

REACTIONS (1)
  - Death [Fatal]

NARRATIVE: CASE EVENT DATE: 20210113
